FAERS Safety Report 5132674-4 (Version None)
Quarter: 2006Q4

REPORT INFORMATION
  Report Type: 
  Country: None (occurrence: None)
  Receive Date: 20061019
  Receipt Date: 20061019
  Transmission Date: 20070319
  Serious: Yes (Hospitalization)
  Sender: FDA-Public Use
  Company Number: None

PATIENT
  Sex: Female
  Weight: 69.5 kg

DRUGS (1)
  1. TEMOZOLOMIDE [Suspect]
     Dosage: 1450 MG

REACTIONS (4)
  - ASTHENIA [None]
  - COGNITIVE DISORDER [None]
  - CONFUSIONAL STATE [None]
  - GENERAL PHYSICAL HEALTH DETERIORATION [None]
